FAERS Safety Report 7990218 (Version 3)
Quarter: 2018Q1

REPORT INFORMATION
  Report Type: Spontaneous
  Country: GB (occurrence: GB)
  Receive Date: 20110614
  Receipt Date: 20180221
  Transmission Date: 20180509
  Serious: Yes (Other)
  Sender: FDA-Public Use
  Company Number: GB-TEVA-285135ISR

PATIENT
  Age: 21 Year
  Sex: Female

DRUGS (14)
  1. DIAZEPAM. [Concomitant]
     Active Substance: DIAZEPAM
     Dosage: 1-2 MG
     Dates: start: 20100910
  2. ORPHENADRINE [Concomitant]
     Active Substance: ORPHENADRINE
     Dosage: 150 MILLIGRAM DAILY;
     Dates: start: 20101111
  3. RISPERIDONE. [Suspect]
     Active Substance: RISPERIDONE
     Route: 048
     Dates: start: 201011
  4. ESCITALOPRAM [Suspect]
     Active Substance: ESCITALOPRAM OXALATE
     Dosage: WAS REDUCED AND THEN STOPPED
     Dates: start: 20110520
  5. ARIPIPRAZOLE. [Concomitant]
     Active Substance: ARIPIPRAZOLE
     Dosage: 5 MILLIGRAM DAILY;
     Dates: start: 20101022, end: 20101125
  6. PROCYCLIDINE [Concomitant]
     Active Substance: PROCYCLIDINE
     Dates: start: 20101125, end: 20110202
  7. PROCYCLIDINE [Concomitant]
     Active Substance: PROCYCLIDINE
     Dosage: 5 MILLIGRAM DAILY;
     Dates: start: 20100416, end: 20100528
  8. RISPERIDONE. [Suspect]
     Active Substance: RISPERIDONE
     Dosage: 1.5 MILLIGRAM DAILY;
     Route: 048
     Dates: start: 20100708, end: 20100929
  9. ESCITALOPRAM [Suspect]
     Active Substance: ESCITALOPRAM OXALATE
     Indication: ANXIETY
     Dosage: 10 MILLIGRAM DAILY;
     Route: 048
     Dates: start: 20101125
  10. DIAZEPAM. [Concomitant]
     Active Substance: DIAZEPAM
     Dosage: 4 MG
     Dates: start: 20100910
  11. ARIPIPRAZOLE. [Concomitant]
     Active Substance: ARIPIPRAZOLE
     Dosage: 5 MILLIGRAM DAILY; EVERY MORNING
     Dates: start: 20100929, end: 20101022
  12. PROCYCLIDINE [Concomitant]
     Active Substance: PROCYCLIDINE
     Dosage: 7.5 MILLIGRAM DAILY;
     Dates: start: 20100528, end: 20101022
  13. RISPERIDONE. [Suspect]
     Active Substance: RISPERIDONE
     Indication: DISTURBANCE IN SOCIAL BEHAVIOUR
     Dosage: 0.25-1.5MG
     Route: 048
     Dates: start: 20100415, end: 20100708
  14. ESCITALOPRAM [Suspect]
     Active Substance: ESCITALOPRAM OXALATE
     Dosage: 20 MILLIGRAM DAILY;
     Route: 048
     Dates: start: 20101230, end: 20110520

REACTIONS (3)
  - Oculogyric crisis [Not Recovered/Not Resolved]
  - Anxiety [Unknown]
  - Disturbance in social behaviour [Unknown]

NARRATIVE: CASE EVENT DATE: 2010
